FAERS Safety Report 10346316 (Version 1)
Quarter: 2014Q3

REPORT INFORMATION
  Report Type: Spontaneous
  Country: FR (occurrence: FR)
  Receive Date: 20140728
  Receipt Date: 20140728
  Transmission Date: 20150326
  Serious: Yes (Life-Threatening, Hospitalization)
  Sender: FDA-Public Use
  Company Number: FR-EISAI INC-E2090-03430-SPO-FR

PATIENT
  Age: 33 Year
  Sex: Female

DRUGS (11)
  1. LAMICTAL [Suspect]
     Active Substance: LAMOTRIGINE
     Dosage: UNKNOWN
     Route: 048
     Dates: start: 20140406, end: 20140406
  2. LAMICTAL [Suspect]
     Active Substance: LAMOTRIGINE
     Dosage: 200 MG/DAY
     Route: 048
     Dates: start: 20140407
  3. NORDAZ [Concomitant]
     Active Substance: NORDAZEPAM
     Indication: PRODUCT USED FOR UNKNOWN INDICATION
     Dosage: UNKNOWN
     Route: 048
  4. KEPPRA [Suspect]
     Active Substance: LEVETIRACETAM
     Dosage: UNKNOWN
     Route: 048
     Dates: start: 20140406, end: 20140406
  5. NOCTAMIDE [Concomitant]
     Active Substance: LORMETAZEPAM
     Indication: PRODUCT USED FOR UNKNOWN INDICATION
     Dosage: UNKNOWN
     Route: 048
  6. ZONEGRAN [Suspect]
     Active Substance: ZONISAMIDE
     Indication: EPILEPSY
     Dosage: ESCALATING (DOSE UNKNOWN)
     Route: 048
     Dates: start: 201001, end: 20100114
  7. ZONEGRAN [Suspect]
     Active Substance: ZONISAMIDE
     Dosage: 200 MG/DAY
     Route: 048
     Dates: start: 20100115, end: 20140405
  8. ZONEGRAN [Suspect]
     Active Substance: ZONISAMIDE
     Dosage: UNKNOWN
     Route: 048
     Dates: start: 20140406, end: 20140406
  9. KEPPRA [Suspect]
     Active Substance: LEVETIRACETAM
     Indication: EPILEPSY
     Dosage: 3 G/DAY
     Route: 048
     Dates: end: 20140405
  10. LAMICTAL [Suspect]
     Active Substance: LAMOTRIGINE
     Indication: EPILEPSY
     Dosage: 200 MG/DAY
     Route: 048
     Dates: end: 20140405
  11. KEPPRA [Suspect]
     Active Substance: LEVETIRACETAM
     Dosage: 3 G/DAY
     Route: 048
     Dates: start: 20140407

REACTIONS (6)
  - Depression [Recovered/Resolved with Sequelae]
  - Pneumonia [Recovered/Resolved]
  - Suicide attempt [Recovered/Resolved with Sequelae]
  - Coma [Recovered/Resolved]
  - Overdose [Recovered/Resolved with Sequelae]
  - Metabolic acidosis [Recovered/Resolved]

NARRATIVE: CASE EVENT DATE: 20100115
